FAERS Safety Report 18672654 (Version 4)
Quarter: 2022Q1

REPORT INFORMATION
  Report Type: Spontaneous
  Country: US (occurrence: US)
  Receive Date: 20201228
  Receipt Date: 20220225
  Transmission Date: 20220423
  Serious: No
  Sender: FDA-Public Use
  Company Number: US-PFIZER INC-2020461284

PATIENT
  Age: 57 Year
  Sex: Female

DRUGS (4)
  1. XELJANZ XR [Suspect]
     Active Substance: TOFACITINIB CITRATE
     Indication: Rheumatoid arthritis
     Dosage: 11 MG, DAILY
     Route: 048
     Dates: start: 20201126
  2. XELJANZ XR [Suspect]
     Active Substance: TOFACITINIB CITRATE
     Dosage: 11 MG (11MG ORALLY FOUR DAYS PER WEEK)
     Route: 048
     Dates: start: 20210812
  3. XELJANZ XR [Suspect]
     Active Substance: TOFACITINIB CITRATE
     Dosage: 11 MG (FOUR DAYS A WEEK)
     Route: 048
     Dates: start: 20201126
  4. HYDROXYCHLOROQUINE [Suspect]
     Active Substance: HYDROXYCHLOROQUINE

REACTIONS (12)
  - White blood cell count decreased [Unknown]
  - Neck pain [Unknown]
  - Muscle spasms [Unknown]
  - Discouragement [Unknown]
  - Loss of personal independence in daily activities [Unknown]
  - Skin lesion [Not Recovered/Not Resolved]
  - Acne [Not Recovered/Not Resolved]
  - Scar [Not Recovered/Not Resolved]
  - Product dose omission in error [Unknown]
  - COVID-19 [Unknown]
  - Arthralgia [Unknown]
  - Off label use [Unknown]

NARRATIVE: CASE EVENT DATE: 20201101
